FAERS Safety Report 8595174-5 (Version None)
Quarter: 2012Q3

REPORT INFORMATION
  Report Type: 
  Country: None (occurrence: None)
  Receive Date: 20120815
  Receipt Date: 20070526
  Transmission Date: 20120928
  Serious: Yes (Death)
  Sender: FDA-Public Use
  Company Number: CO-PFIZER INC-2012195083

PATIENT
  Age: 76 Year
  Sex: Male

DRUGS (4)
  1. GLIBENCLAMIDE [Concomitant]
     Dosage: 5 MG, 1X/DAY
  2. METFORMIN [Concomitant]
     Dosage: 850 MG, 2X/DAY
  3. ACCUPRIL [Suspect]
     Indication: HYPERTENSION
     Dosage: 20 MG, 1X/DAY
  4. LIPITOR [Suspect]
     Indication: DYSLIPIDAEMIA
     Dosage: 20 MG, 1X/DAY

REACTIONS (3)
  - POLLAKIURIA [None]
  - ABDOMINAL DISCOMFORT [None]
  - DEATH [None]
